FAERS Safety Report 6036658-3 (Version None)
Quarter: 2009Q1

REPORT INFORMATION
  Report Type: 
  Country: None (occurrence: None)
  Receive Date: 20090114
  Receipt Date: 20081205
  Transmission Date: 20090719
  Serious: Yes (Death, Life-Threatening, Hospitalization)
  Sender: FDA-Public Use
  Company Number: US-AVENTIS-200720274GDDC

PATIENT
  Age: 65 Year
  Sex: Male
  Weight: 102.1 kg

DRUGS (5)
  1. AFLIBERCEPT [Suspect]
     Indication: PSEUDOMYXOMA PERITONEI
     Route: 042
     Dates: start: 20071029, end: 20071029
  2. DOCETAXEL [Suspect]
     Indication: PSEUDOMYXOMA PERITONEI
     Route: 042
     Dates: start: 20071029, end: 20071029
  3. CISPLATIN [Suspect]
     Indication: PSEUDOMYXOMA PERITONEI
     Route: 042
     Dates: start: 20071029, end: 20071029
  4. FLUOROURACIL [Suspect]
     Indication: PSEUDOMYXOMA PERITONEI
     Route: 042
     Dates: start: 20071029, end: 20071103
  5. NEXIUM [Concomitant]
     Route: 048
     Dates: start: 20071001, end: 20071101

REACTIONS (3)
  - BRADYCARDIA [None]
  - PULMONARY EMBOLISM [None]
  - SYNCOPE [None]
